APPROVED DRUG PRODUCT: POLOCAINE
Active Ingredient: MEPIVACAINE HYDROCHLORIDE
Strength: 3%
Dosage Form/Route: INJECTABLE;INJECTION
Application: A088653 | Product #001
Applicant: DENTSPLY PHARMACEUTICAL
Approved: Aug 21, 1984 | RLD: No | RS: No | Type: DISCN